FAERS Safety Report 4510165-9 (Version None)
Quarter: 2004Q4

REPORT INFORMATION
  Report Type: 
  Country: None (occurrence: None)
  Receive Date: 20041119
  Receipt Date: 20041108
  Transmission Date: 20050328
  Serious: Yes (Other)
  Sender: FDA-Public Use
  Company Number: DE-2004-034752

PATIENT
  Age: 35 Year
  Sex: Female

DRUGS (1)
  1. MIRENA [Suspect]
     Dosage: 20  UG/DAY, CONT, INTRA-UTERINE
     Route: 015
     Dates: start: 20010501

REACTIONS (4)
  - GILBERT'S SYNDROME [None]
  - HEPATOMEGALY [None]
  - HYPERBILIRUBINAEMIA [None]
  - NAUSEA [None]
